FAERS Safety Report 8840216 (Version 6)
Quarter: 2014Q3

REPORT INFORMATION
  Report Type: Report from Study
  Country: JP (occurrence: JP)
  Receive Date: 20121015
  Receipt Date: 20140708
  Transmission Date: 20150326
  Serious: Yes (Hospitalization)
  Sender: FDA-Public Use
  Company Number: JP-VERTEX PHARMACEUTICAL INC.-AE-2012-008338

PATIENT
  Age: 58 Year
  Sex: Male

DRUGS (20)
  1. REBETOL [Suspect]
     Active Substance: RIBAVIRIN
     Dosage: 600 MG, QD
     Route: 048
     Dates: start: 20120502, end: 20120516
  2. REBETOL [Suspect]
     Active Substance: RIBAVIRIN
     Dosage: 400MG, 600MG/2DAYS
     Route: 048
     Dates: start: 20120628, end: 20120711
  3. GOODMIN [Concomitant]
     Active Substance: BROTIZOLAM
     Dosage: 0.25 MG, PRN
     Route: 048
     Dates: end: 20120606
  4. DIOVAN [Concomitant]
     Active Substance: VALSARTAN
     Dosage: 80 MG, QD
     Route: 048
  5. TELAPREVIR [Suspect]
     Active Substance: TELAPREVIR
     Dosage: 2000 MG, QD
     Route: 048
     Dates: start: 20120621, end: 20120627
  6. REBETOL [Suspect]
     Active Substance: RIBAVIRIN
     Dosage: 800 MG, QD
     Route: 048
     Dates: start: 20120425, end: 20120501
  7. REBETOL [Suspect]
     Active Substance: RIBAVIRIN
     Dosage: 200MG, 400MG/DAYON ALTERNATE DAYS
     Route: 048
     Dates: start: 20120530, end: 20120627
  8. REBETOL [Suspect]
     Active Substance: RIBAVIRIN
     Dosage: 400MG, 600MG/2 DAYS
     Route: 048
     Dates: start: 20120719, end: 20120912
  9. TELAPREVIR [Suspect]
     Active Substance: TELAPREVIR
     Dosage: 2000 MG, QD
     Route: 048
     Dates: start: 20120523, end: 20120605
  10. REBETOL [Suspect]
     Active Substance: RIBAVIRIN
     Dosage: 400 MG, QD
     Route: 048
     Dates: start: 20120517, end: 20120529
  11. GOODMIN [Concomitant]
     Active Substance: BROTIZOLAM
     Dosage: 0.25 MG, QD
     Route: 048
     Dates: start: 20120404
  12. TELAPREVIR [Suspect]
     Active Substance: TELAPREVIR
     Indication: CHRONIC HEPATITIS C
     Dosage: 2250 MG, QD
     Route: 048
     Dates: start: 20120404, end: 20120522
  13. TELAPREVIR [Suspect]
     Active Substance: TELAPREVIR
     Dosage: 1750 MG, QD
     Route: 048
     Dates: start: 20120606, end: 20120620
  14. REBETOL [Suspect]
     Active Substance: RIBAVIRIN
     Dosage: 600 MG, QD
     Route: 048
     Dates: start: 20120913, end: 20120919
  15. PEGINTRON [Suspect]
     Active Substance: PEGINTERFERON ALFA-2B
     Dosage: 120 ?G, QW
     Route: 058
     Dates: start: 20120627
  16. ETHYL ICOSAPENTATE [Concomitant]
     Active Substance: ETHYL ICOSAPENTATE
     Dosage: 1800 MG, QD
     Route: 048
     Dates: start: 20120425, end: 20120919
  17. PEGINTRON [Suspect]
     Active Substance: PEGINTERFERON ALFA-2B
     Indication: CHRONIC HEPATITIS C
     Dosage: 120 ?G, QW
     Route: 058
     Dates: start: 20120404
  18. DOGMATYL [Concomitant]
     Active Substance: SULPIRIDE
     Dosage: 100 MG, QD
     Route: 048
     Dates: start: 20120523
  19. REBETOL [Suspect]
     Active Substance: RIBAVIRIN
     Indication: CHRONIC HEPATITIS C
     Dosage: 1000 MG, QD
     Route: 048
     Dates: start: 20120404, end: 20120424
  20. REBETOL [Suspect]
     Active Substance: RIBAVIRIN
     Dosage: 400 MG, QD
     Route: 048
     Dates: start: 20120712, end: 20120718

REACTIONS (4)
  - Sleep disorder [Recovering/Resolving]
  - Malaise [Not Recovered/Not Resolved]
  - Anaemia [Recovering/Resolving]
  - Insomnia [Not Recovered/Not Resolved]

NARRATIVE: CASE EVENT DATE: 20120425
